FAERS Safety Report 4373059-8 (Version None)
Quarter: 2004Q2

REPORT INFORMATION
  Report Type: 
  Country: None (occurrence: None)
  Receive Date: 20040526
  Receipt Date: 20040510
  Transmission Date: 20050107
  Serious: Yes (Death, Hospitalization)
  Sender: FDA-Public Use
  Company Number: 2003177321BE

PATIENT
  Age: 72 Year
  Sex: Male
  Weight: 65 kg

DRUGS (8)
  1. CELECOXIB/PLACEBO (CELECOXIB/PLACEBO) CAPSULE [Suspect]
     Indication: COLORECTAL CANCER METASTATIC
     Dosage: 800 MG, QD, ORAL
     Route: 048
     Dates: start: 20030804
  2. CAMPTOSAR [Suspect]
     Indication: COLORECTAL CANCER METASTATIC
     Dosage: 320 MG, CYCLIC, IV
     Route: 042
     Dates: start: 20030804, end: 20030804
  3. CAMPTOSAR [Suspect]
     Indication: COLORECTAL CANCER METASTATIC
     Dosage: 320 MG, CYCLIC, IV
     Route: 042
     Dates: start: 20030818, end: 20030818
  4. FLUOROURACIL [Suspect]
     Indication: COLORECTAL CANCER METASTATIC
     Dosage: SEE IMAGE
     Route: 042
     Dates: start: 20030804, end: 20030805
  5. FLUOROURACIL [Suspect]
     Indication: COLORECTAL CANCER METASTATIC
     Dosage: SEE IMAGE
     Route: 042
     Dates: start: 20030818, end: 20030819
  6. ELVORINE (CALCIUM LEVOFOLINATE) [Suspect]
     Indication: COLORECTAL CANCER METASTATIC
     Dosage: SEE IMAGE
     Route: 042
     Dates: start: 20030804, end: 20030804
  7. ELVORINE (CALCIUM LEVOFOLINATE) [Suspect]
     Indication: COLORECTAL CANCER METASTATIC
     Dosage: SEE IMAGE
     Route: 042
     Dates: start: 20030819, end: 20030819
  8. FORMOTEROL FUMARATE (FORMOTEROL FUMARATE) [Concomitant]

REACTIONS (16)
  - ACTIVATED PARTIAL THROMBOPLASTIN TIME PROLONGED [None]
  - ANOREXIA [None]
  - ASTHENIA [None]
  - BLOOD CULTURE POSITIVE [None]
  - BLOOD LACTATE DEHYDROGENASE INCREASED [None]
  - C-REACTIVE PROTEIN INCREASED [None]
  - DIARRHOEA [None]
  - DYSPNOEA [None]
  - FEBRILE NEUTROPENIA [None]
  - LUNG INFECTION [None]
  - PLATELET COUNT DECREASED [None]
  - PNEUMOCOCCAL SEPSIS [None]
  - PULMONARY EMBOLISM [None]
  - STREPTOCOCCAL INFECTION [None]
  - VOMITING [None]
  - WHITE BLOOD CELL DISORDER [None]
